FAERS Safety Report 5909070-2 (Version None)
Quarter: 2008Q3

REPORT INFORMATION
  Report Type: 
  Country: None (occurrence: None)
  Receive Date: 20080929
  Receipt Date: 20080916
  Transmission Date: 20090109
  Serious: Yes (Hospitalization)
  Sender: FDA-Public Use
  Company Number: US024638

PATIENT
  Sex: Male
  Weight: 136.0791 kg

DRUGS (3)
  1. PROVIGIL [Suspect]
     Dosage: ORAL
     Route: 048
  2. KLONOPIN [Concomitant]
  3. THYROID MEDICATION [Concomitant]

REACTIONS (6)
  - ANXIETY [None]
  - CHEST PAIN [None]
  - CONDITION AGGRAVATED [None]
  - DEPRESSION [None]
  - PANIC ATTACK [None]
  - PRURITUS [None]
